FAERS Safety Report 6357094-6 (Version None)
Quarter: 2009Q3

REPORT INFORMATION
  Report Type: 
  Country: None (occurrence: None)
  Receive Date: 20090915
  Receipt Date: 20090902
  Transmission Date: 20100115
  Serious: Yes (Hospitalization, Other)
  Sender: FDA-Public Use
  Company Number: US-ELI_LILLY_AND_COMPANY-US200908001478

PATIENT
  Sex: Male
  Weight: 68.027 kg

DRUGS (2)
  1. EFFIENT [Suspect]
     Indication: ACUTE CORONARY SYNDROME
     Dosage: 60 MG, UNK
     Dates: start: 20090718, end: 20090718
  2. EFFIENT [Suspect]
     Dosage: 10 MG, UNK
     Dates: start: 20090719

REACTIONS (2)
  - ANGINA PECTORIS [None]
  - THROMBOSIS IN DEVICE [None]
